FAERS Safety Report 25643831 (Version 3)
Quarter: 2025Q3

REPORT INFORMATION
  Report Type: Spontaneous
  Country: RU (occurrence: RU)
  Receive Date: 20250805
  Receipt Date: 20250910
  Transmission Date: 20251021
  Serious: Yes (Hospitalization)
  Sender: NOVARTIS
  Company Number: RU-002147023-NVSC2025RU121233

PATIENT
  Age: 28 Year
  Sex: Male

DRUGS (4)
  1. IPTACOPAN [Suspect]
     Active Substance: IPTACOPAN
     Indication: Nephropathy
     Dosage: 200 MG, TID
     Route: 048
     Dates: start: 20250715
  2. IPTACOPAN [Suspect]
     Active Substance: IPTACOPAN
     Dosage: 200 MG, BID
     Route: 048
     Dates: start: 20250727
  3. FRESH FROZEN PLASMA [Concomitant]
     Active Substance: HUMAN PLASMA
     Indication: Product used for unknown indication
     Route: 065
  4. PREDNISOLONE [Concomitant]
     Active Substance: PREDNISOLONE
     Indication: Product used for unknown indication
     Route: 065

REACTIONS (2)
  - Haematuria [Recovered/Resolved]
  - Chromaturia [Recovering/Resolving]

NARRATIVE: CASE EVENT DATE: 20250715
